FAERS Safety Report 22271209 (Version 1)
Quarter: 2023Q2

REPORT INFORMATION
  Report Type: Spontaneous
  Country: US (occurrence: None)
  Receive Date: 20230428
  Receipt Date: 20230428
  Transmission Date: 20230721
  Serious: No
  Sender: FDA-Public Use
  Company Number: None

PATIENT
  Sex: Male

DRUGS (1)
  1. GENOTROPIN [Suspect]
     Active Substance: SOMATROPIN
     Indication: Hypopituitarism
     Dosage: OTHER FREQUENCY : 6 TIMES WEEKLY;?
     Route: 058
     Dates: start: 202302

REACTIONS (5)
  - Accidental overdose [None]
  - Needle issue [None]
  - Wrong technique in product usage process [None]
  - Device delivery system issue [None]
  - Device breakage [None]
